FAERS Safety Report 10232246 (Version 1)
Quarter: 2014Q2

REPORT INFORMATION
  Report Type: Spontaneous
  Country: CN (occurrence: CN)
  Receive Date: 20140612
  Receipt Date: 20140612
  Transmission Date: 20141212
  Serious: Yes (Other)
  Sender: FDA-Public Use
  Company Number: CN-ROCHE-1416975

PATIENT
  Sex: Male
  Weight: 52 kg

DRUGS (2)
  1. XELODA [Suspect]
     Indication: RECTOSIGMOID CANCER
     Route: 048
     Dates: start: 20121225, end: 20130107
  2. OXALIPLATIN [Suspect]
     Indication: RECTOSIGMOID CANCER
     Route: 041
     Dates: start: 20121225, end: 20121225

REACTIONS (1)
  - Hepatic function abnormal [Recovering/Resolving]
